FAERS Safety Report 8758755 (Version 3)
Quarter: 2013Q2

REPORT INFORMATION
  Report Type: Spontaneous
  Country: US (occurrence: None)
  Receive Date: 20120810
  Receipt Date: 20130418
  Transmission Date: 20140414
  Serious: Yes (Death)
  Sender: FDA-Public Use
  Company Number: 2012PROUSA01732

PATIENT
  Age: 67 Year
  Sex: Male
  Weight: 111.1 kg

DRUGS (15)
  1. PROVENGE [Suspect]
     Indication: PROSTATE CANCER METASTATIC
     Route: 042
     Dates: start: 20120706, end: 20120706
  2. PLAVIX (CLOPIDOGREL BISULFATE) [Concomitant]
  3. DIGOXIN (DIGOXIN) [Concomitant]
  4. BENAZEPRIL (BENAZEPRIL) [Concomitant]
  5. ASPIRIN (ACETYLSALICYLIC ACID) [Concomitant]
  6. FENOFIBRATE (FENOFIBRATE) [Concomitant]
  7. MELOXICAM (MELOXICAM) [Concomitant]
  8. NITROGLYCERIN (GLYCERYL TRINITRATE) [Concomitant]
  9. PRAVASTATIN NA (PRAVASTATIN SODIUM) [Concomitant]
  10. HYDROCODONE (HYDROCODONE BITARTRATE) [Concomitant]
  11. ALPRAZOLAM (ALPRAZOLAM) [Concomitant]
  12. FUROSEMIDE (FUROSEMIDE) [Concomitant]
  13. MORPHINE SULFATE (MORPHINE SULFATE) [Concomitant]
  14. CARVEDILOL (CARVEDILOL) [Concomitant]
  15. PRAVASTATIN SODIUM (PRAVASTATIN SODIUM) [Concomitant]

REACTIONS (1)
  - Prostate cancer [None]
